FAERS Safety Report 9293725 (Version 3)
Quarter: 2014Q1

REPORT INFORMATION
  Report Type: Spontaneous
  Country: US (occurrence: US)
  Receive Date: 20130516
  Receipt Date: 20140213
  Transmission Date: 20141002
  Serious: Yes (Hospitalization)
  Sender: FDA-Public Use
  Company Number: US-BAYER-2013-059632

PATIENT
  Age: 37 Year
  Sex: Female
  Weight: 91 kg

DRUGS (8)
  1. YASMIN [Suspect]
     Indication: CONTRACEPTION
     Dosage: UNK
     Dates: start: 200710, end: 20080726
  2. YAZ [Suspect]
     Indication: CONTRACEPTION
     Dosage: UNK
     Dates: start: 20090825, end: 20090902
  3. OCELLA [Suspect]
     Indication: CONTRACEPTION
     Dosage: UNK
     Dates: start: 20080727, end: 20110113
  4. DIOVAN HCT [Concomitant]
     Indication: HYPERTENSION
     Dosage: 80-12.5 MG
     Dates: start: 2005
  5. EFFEXOR XR [Concomitant]
     Indication: ANXIETY
     Dosage: 75 MG, UNK
     Dates: start: 2006
  6. EFFEXOR XR [Concomitant]
     Indication: FIBROMYALGIA
  7. PLAVIX [Concomitant]
  8. CRESTOR [Concomitant]

REACTIONS (11)
  - Acute myocardial infarction [None]
  - Coronary artery occlusion [None]
  - Electrocardiogram ST segment elevation [None]
  - Injury [None]
  - General physical health deterioration [None]
  - Emotional distress [None]
  - Anxiety [None]
  - Pain [None]
  - Chest pain [None]
  - Pain in jaw [None]
  - Pain in extremity [None]
